FAERS Safety Report 12868554 (Version 4)
Quarter: 2018Q1

REPORT INFORMATION
  Report Type: Report from Study
  Country: US (occurrence: US)
  Receive Date: 20161020
  Receipt Date: 20180105
  Transmission Date: 20180508
  Serious: No
  Sender: FDA-Public Use
  Company Number: US-AMGEN-USASL2016094864

PATIENT
  Age: 76 Year
  Sex: Female

DRUGS (2)
  1. LAMISIL [Concomitant]
     Active Substance: TERBINAFINE HYDROCHLORIDE
     Dosage: 250 MG, UNK
  2. REPATHA [Suspect]
     Active Substance: EVOLOCUMAB
     Indication: BLOOD CHOLESTEROL INCREASED
     Dosage: 140 MG, Q2WK
     Route: 065

REACTIONS (5)
  - Pain [Unknown]
  - Drug effect incomplete [Unknown]
  - Diarrhoea [Unknown]
  - Colonoscopy [Unknown]
  - Urticaria [Recovering/Resolving]
